FAERS Safety Report 17962822 (Version 1)
Quarter: 2020Q2

REPORT INFORMATION
  Report Type: Spontaneous
  Country: US (occurrence: US)
  Receive Date: 20200630
  Receipt Date: 20200630
  Transmission Date: 20200714
  Serious: Yes (Death)
  Sender: FDA-Public Use
  Company Number: None

PATIENT
  Age: 81 Year
  Sex: Male
  Weight: 90.45 kg

DRUGS (17)
  1. REMDESIVIR. [Suspect]
     Active Substance: REMDESIVIR
     Indication: COVID-19
     Route: 042
     Dates: start: 20200520, end: 20200524
  2. VASOPRESSIN INFUSION [Concomitant]
     Dates: start: 20200524, end: 20200524
  3. ALBUMIN 25% [Concomitant]
     Active Substance: ALBUMIN HUMAN
     Dates: start: 20200523, end: 20200524
  4. MORPHINE 2 MG PRN [Concomitant]
     Dates: start: 20200524, end: 20200524
  5. CARBIDOPA-LEVODOPA 25/100 [Concomitant]
     Dates: start: 20200517, end: 20200524
  6. INSULIN ASPART PRN [Concomitant]
     Dates: start: 20200517, end: 20200524
  7. LORAZEPAM 2 MG X 1 [Concomitant]
     Dates: start: 20200524, end: 20200524
  8. SENNOSIDES-DOCUSATE 1 TAB [Concomitant]
     Dates: start: 20200517, end: 20200524
  9. ALBUTEROL 0.5% HHN PRN [Concomitant]
     Dates: start: 20200523, end: 20200524
  10. HALOPERIDOL 2.5 MG PRN [Concomitant]
     Dates: start: 20200519, end: 20200524
  11. NOREPINEPHRINE INFUSION [Concomitant]
     Dates: start: 20200523, end: 20200524
  12. PANTOPRAZOLE 40 MG IV [Concomitant]
     Active Substance: PANTOPRAZOLE SODIUM
     Dates: start: 20200523, end: 20200524
  13. PIMAVANSERIN 17 MG [Concomitant]
     Dates: start: 20200518, end: 20200524
  14. DOPAMINE INFUSION [Concomitant]
     Dates: start: 20200518, end: 20200524
  15. IPRATROPRIUM/ALBUTEROL HHN [Concomitant]
     Dates: start: 20200517, end: 20200524
  16. ACETAMINOPHEN IV [Concomitant]
     Dates: start: 20200523, end: 20200524
  17. ENOXAPARIN 95 MG [Concomitant]
     Dates: start: 20200523, end: 20200524

REACTIONS (3)
  - Heart rate decreased [None]
  - Oxygen saturation decreased [None]
  - Haemodynamic instability [None]

NARRATIVE: CASE EVENT DATE: 20200524
